FAERS Safety Report 6731437-3 (Version None)
Quarter: 2010Q2

REPORT INFORMATION
  Report Type: 
  Country: None (occurrence: None)
  Receive Date: 20100518
  Receipt Date: 20100518
  Transmission Date: 20101027
  Serious: Yes (Other)
  Sender: FDA-Public Use
  Company Number: None

PATIENT
  Sex: Female
  Weight: 62.5964 kg

DRUGS (2)
  1. SINGULAIR [Suspect]
     Indication: HYPERSENSITIVITY
     Dosage: 1 TBLET ONCE A DAY @ NITE PO
     Route: 048
     Dates: start: 20100512, end: 20100515
  2. SINGULAIR [Suspect]
     Indication: RHINITIS
     Dosage: 1 TBLET ONCE A DAY @ NITE PO
     Route: 048
     Dates: start: 20100512, end: 20100515

REACTIONS (5)
  - AGGRESSION [None]
  - ANGER [None]
  - ANXIETY [None]
  - IRRITABILITY [None]
  - NERVOUSNESS [None]
